FAERS Safety Report 23288795 (Version 3)
Quarter: 2025Q2

REPORT INFORMATION
  Report Type: Spontaneous
  Country: US (occurrence: US)
  Receive Date: 20231212
  Receipt Date: 20250626
  Transmission Date: 20250717
  Serious: No
  Sender: SANOFI AVENTIS
  Company Number: US-SA-SAC20231208000148

PATIENT
  Age: 1 Year
  Sex: Female

DRUGS (1)
  1. DUPIXENT [Suspect]
     Active Substance: DUPILUMAB
     Indication: Dermatitis atopic
     Dosage: 200 MG, Q4W
     Route: 058
     Dates: start: 202301

REACTIONS (3)
  - Pyrexia [Unknown]
  - Nasopharyngitis [Unknown]
  - Intentional product misuse [Unknown]
